FAERS Safety Report 9360930 (Version 1)
Quarter: 2013Q2

REPORT INFORMATION
  Report Type: Spontaneous
  Country: US (occurrence: None)
  Receive Date: 20130620
  Receipt Date: 20130620
  Transmission Date: 20140414
  Serious: Yes (Other)
  Sender: FDA-Public Use
  Company Number: None

PATIENT
  Age: 10 Year
  Sex: Male

DRUGS (2)
  1. LAMICTAL 200MG [Suspect]
     Indication: EPILEPSY
     Dosage: 1 BID PO
     Route: 048
     Dates: start: 20100409
  2. LAMICTAL 25MG [Suspect]
     Indication: EPILEPSY
     Dosage: 2 BID PO
     Route: 048
     Dates: start: 20100409

REACTIONS (2)
  - Product substitution issue [None]
  - Convulsion [None]
